FAERS Safety Report 21745575 (Version 2)
Quarter: 2023Q1

REPORT INFORMATION
  Report Type: Spontaneous
  Country: US (occurrence: US)
  Receive Date: 20221219
  Receipt Date: 20230118
  Transmission Date: 20230417
  Serious: No
  Sender: FDA-Public Use
  Company Number: US-VIIV HEALTHCARE LIMITED-US2022AMR185000

PATIENT
  Age: 59 Year
  Sex: Female

DRUGS (10)
  1. RILPIVIRINE [Suspect]
     Active Substance: RILPIVIRINE
     Indication: HIV infection
     Dosage: UNK UNK, Z: Q1M DOSING, 600/900, INITIATION DOSE
     Route: 065
     Dates: start: 20220902
  2. RILPIVIRINE [Suspect]
     Active Substance: RILPIVIRINE
     Dosage: UNK UNK, Z: Q1M DOSING, 400/600MG, CONTINUATION DOSE
     Route: 065
     Dates: start: 20221007
  3. RILPIVIRINE [Suspect]
     Active Substance: RILPIVIRINE
     Dosage: UNK UNK, Z: Q1M DOSING, 400/600MG, CONTINUATION DOSE
     Route: 065
     Dates: start: 20221109
  4. RILPIVIRINE [Suspect]
     Active Substance: RILPIVIRINE
     Dosage: UNK UNK, Z: Q1M DOSING, 600/900MG, CONTINUATION DOSE
     Route: 065
     Dates: start: 20221207
  5. CABOTEGRAVIR [Suspect]
     Active Substance: CABOTEGRAVIR
     Indication: Product used for unknown indication
     Dosage: UNK UNK, Z: Q1M DOSING, 600/900, INITIATION DOSE
     Route: 065
     Dates: start: 20220902
  6. CABOTEGRAVIR [Suspect]
     Active Substance: CABOTEGRAVIR
     Dosage: UNK, Z: Q1M DOSING, 400/600 MG, CONTINUATION DOSE
     Route: 065
     Dates: start: 20221007
  7. CABOTEGRAVIR [Suspect]
     Active Substance: CABOTEGRAVIR
     Dosage: UNK UNK, Z: Q1M DOSING, 400/600MG, CONTINUATION DOSE
     Route: 065
     Dates: start: 20221109
  8. CABOTEGRAVIR [Suspect]
     Active Substance: CABOTEGRAVIR
     Dosage: UNK UNK, Z: Q1M DOSING, 600/900MG, CONTINUATION DOSE
     Route: 065
     Dates: start: 20221207
  9. VOCABRIA [Concomitant]
     Active Substance: CABOTEGRAVIR SODIUM
     Indication: Product used for unknown indication
     Dosage: UNK
     Route: 048
  10. EDURANT [Concomitant]
     Active Substance: RILPIVIRINE HYDROCHLORIDE
     Indication: Product used for unknown indication
     Dosage: UNK
     Route: 048

REACTIONS (2)
  - Incorrect dose administered [Unknown]
  - Product dispensing error [Unknown]

NARRATIVE: CASE EVENT DATE: 20220101
